FAERS Safety Report 5568857-9 (Version None)
Quarter: 2007Q4

REPORT INFORMATION
  Report Type: 
  Country: None (occurrence: None)
  Receive Date: 20071220
  Receipt Date: 20070213
  Transmission Date: 20080405
  Serious: No
  Sender: FDA-Public Use
  Company Number: A0639525A

PATIENT
  Age: 82 Year
  Sex: Male

DRUGS (5)
  1. AVODART [Suspect]
     Dosage: .5MG PER DAY
     Route: 048
     Dates: start: 20070128
  2. NORVASC [Concomitant]
  3. HYTRIN [Concomitant]
  4. ACTONEL [Concomitant]
  5. PRAVACHOL [Concomitant]

REACTIONS (2)
  - PRURITUS GENERALISED [None]
  - SLEEP DISORDER [None]
